FAERS Safety Report 20326119 (Version 2)
Quarter: 2022Q1

REPORT INFORMATION
  Report Type: Report from Study
  Country: US (occurrence: US)
  Receive Date: 20220112
  Receipt Date: 20220223
  Transmission Date: 20220424
  Serious: Yes (Hospitalization, Other)
  Sender: FDA-Public Use
  Company Number: US-HORIZON THERAPEUTICS-HZN-2021-005650

PATIENT

DRUGS (4)
  1. TEPEZZA [Suspect]
     Active Substance: TEPROTUMUMAB-TRBW
     Indication: Endocrine ophthalmopathy
     Dosage: UNK
     Route: 042
     Dates: start: 20200227
  2. TEPEZZA [Suspect]
     Active Substance: TEPROTUMUMAB-TRBW
     Dosage: 8TH INFUSION
     Route: 042
     Dates: start: 20210723
  3. TEPEZZA [Suspect]
     Active Substance: TEPROTUMUMAB-TRBW
     Dosage: FIRST INFUSION, SECOND COURSE
     Route: 042
     Dates: start: 202109
  4. TEPEZZA [Suspect]
     Active Substance: TEPROTUMUMAB-TRBW
     Dosage: FIFTH INFUSION, SECOND COURSE
     Route: 042

REACTIONS (8)
  - Blood pressure increased [Recovered/Resolved]
  - Lymphadenopathy [Unknown]
  - Rib fracture [Unknown]
  - Therapeutic response unexpected [Unknown]
  - Rash pruritic [Unknown]
  - Blood urine present [Unknown]
  - Visual impairment [Unknown]
  - Intentional product use issue [Unknown]
